FAERS Safety Report 23559807 (Version 1)
Quarter: 2024Q1

REPORT INFORMATION
  Report Type: Spontaneous
  Country: US (occurrence: US)
  Receive Date: 20240223
  Receipt Date: 20240223
  Transmission Date: 20240410
  Serious: Yes (Hospitalization)
  Sender: FDA-Public Use
  Company Number: US-PFIZER INC-PV202300171455

PATIENT
  Age: 79 Year
  Sex: Female
  Weight: 50 kg

DRUGS (4)
  1. BOSULIF [Suspect]
     Active Substance: BOSUTINIB MONOHYDRATE
     Indication: Chronic myeloid leukaemia
     Dosage: 400 MG, 1X/DAY
     Route: 048
     Dates: start: 202301
  2. ALLOPURINOL [Concomitant]
     Active Substance: ALLOPURINOL
     Dosage: UNK
     Dates: start: 202301
  3. HYDROXYUREA [Concomitant]
     Active Substance: HYDROXYUREA
     Dosage: UNK
     Dates: start: 202301
  4. HYDROXYUREA [Concomitant]
     Active Substance: HYDROXYUREA
     Dosage: UNK

REACTIONS (2)
  - Nausea [Unknown]
  - Diarrhoea [Unknown]
